FAERS Safety Report 25332261 (Version 1)
Quarter: 2025Q2

REPORT INFORMATION
  Report Type: Spontaneous
  Country: GB (occurrence: GB)
  Receive Date: 20250519
  Receipt Date: 20250519
  Transmission Date: 20250717
  Serious: Yes (Other)
  Sender: Unknown Manufacturer
  Company Number: GB-RHYTHM PHARMACEUTICALS, INC.-2025RHM000288

PATIENT

DRUGS (1)
  1. IMCIVREE [Suspect]
     Active Substance: SETMELANOTIDE

REACTIONS (3)
  - Hallucinations, mixed [Unknown]
  - Paranoia [Unknown]
  - Depressed mood [Unknown]

NARRATIVE: CASE EVENT DATE: 20250501
